FAERS Safety Report 5626926-9 (Version None)
Quarter: 2008Q1

REPORT INFORMATION
  Report Type: 
  Country: None (occurrence: None)
  Receive Date: 20080212
  Receipt Date: 20071001
  Transmission Date: 20080703
  Serious: Yes (Hospitalization)
  Sender: FDA-Public Use
  Company Number: MK-6037792

PATIENT
  Age: 24 Year
  Sex: Female
  Weight: 58.9676 kg

DRUGS (12)
  1. AMNESTEEM [Suspect]
     Indication: ACNE CYSTIC
     Dosage: 40 MG; DAILY; ORAL, 80 MG; DAILY; ORAL, 80 MG; EVERY OTHER DAY; ORAL, 120 MG; DAILY; ORAL, 120 MG; D
     Route: 048
     Dates: start: 20070129, end: 20070205
  2. AMNESTEEM [Suspect]
     Indication: ACNE CYSTIC
     Dosage: 40 MG; DAILY; ORAL, 80 MG; DAILY; ORAL, 80 MG; EVERY OTHER DAY; ORAL, 120 MG; DAILY; ORAL, 120 MG; D
     Route: 048
     Dates: start: 20070206, end: 20070325
  3. AMNESTEEM [Suspect]
     Indication: ACNE CYSTIC
     Dosage: 40 MG; DAILY; ORAL, 80 MG; DAILY; ORAL, 80 MG; EVERY OTHER DAY; ORAL, 120 MG; DAILY; ORAL, 120 MG; D
     Route: 048
     Dates: start: 20070326, end: 20070424
  4. AMNESTEEM [Suspect]
     Indication: ACNE CYSTIC
     Dosage: 40 MG; DAILY; ORAL, 80 MG; DAILY; ORAL, 80 MG; EVERY OTHER DAY; ORAL, 120 MG; DAILY; ORAL, 120 MG; D
     Route: 048
     Dates: start: 20070326, end: 20070424
  5. AMNESTEEM [Suspect]
     Indication: ACNE CYSTIC
     Dosage: 40 MG; DAILY; ORAL, 80 MG; DAILY; ORAL, 80 MG; EVERY OTHER DAY; ORAL, 120 MG; DAILY; ORAL, 120 MG; D
     Route: 048
     Dates: start: 20070425, end: 20070701
  6. ANTIBIOTICS [Concomitant]
  7. YASMIN [Concomitant]
  8. ASACOL [Concomitant]
  9. MIDRIN [Concomitant]
  10. ZOVIA 1/35E-21 [Concomitant]
  11. METHYLPREDNISOLONE [Concomitant]
  12. DIAMOX SRC [Concomitant]

REACTIONS (12)
  - BENIGN INTRACRANIAL HYPERTENSION [None]
  - CSF PRESSURE INCREASED [None]
  - DIPLOPIA [None]
  - DRUG INEFFECTIVE [None]
  - EXOPHTHALMOS [None]
  - HYPERVITAMINOSIS [None]
  - INTRACRANIAL HYPOTENSION [None]
  - PAPILLOEDEMA [None]
  - PARAESTHESIA [None]
  - POST LUMBAR PUNCTURE SYNDROME [None]
  - SINUSITIS [None]
  - VITAMIN A INCREASED [None]
